FAERS Safety Report 7679933-9 (Version None)
Quarter: 2011Q3

REPORT INFORMATION
  Report Type: 
  Country: None (occurrence: None)
  Receive Date: 20110812
  Receipt Date: 20110804
  Transmission Date: 20111222
  Serious: Yes (Hospitalization, Other)
  Sender: FDA-Public Use
  Company Number: US-BAYER-201034407NA

PATIENT
  Age: 46 Year
  Sex: Female
  Weight: 77 kg

DRUGS (4)
  1. FLUOXETINE [Concomitant]
     Dosage: UNK UNK, QD
     Route: 048
     Dates: start: 20030214
  2. OMEGA [Concomitant]
     Route: 048
  3. YASMIN [Suspect]
     Dosage: UNK
     Route: 048
     Dates: start: 20021212, end: 20030407
  4. CARDIO-TAB [Concomitant]
     Dosage: UNK UNK, QD
     Route: 048

REACTIONS (3)
  - DEEP VEIN THROMBOSIS [None]
  - PULMONARY EMBOLISM [None]
  - CHOLECYSTECTOMY [None]
